FAERS Safety Report 14244256 (Version 3)
Quarter: 2018Q1

REPORT INFORMATION
  Report Type: Spontaneous
  Country: JP (occurrence: JP)
  Receive Date: 20171201
  Receipt Date: 20180110
  Transmission Date: 20180508
  Serious: Yes (Other)
  Sender: FDA-Public Use
  Company Number: JP-PFIZER INC-2017455372

PATIENT
  Age: 69 Year
  Sex: Male
  Weight: 53 kg

DRUGS (7)
  1. AMLODIPINE [Concomitant]
     Active Substance: AMLODIPINE BESYLATE
     Indication: HYPERTENSION
     Dosage: 5 MG, 1X/DAY
     Route: 048
     Dates: start: 20170325, end: 20170522
  2. AMLODIPINE [Concomitant]
     Active Substance: AMLODIPINE BESYLATE
     Dosage: 10 MG, 1X/DAY
     Route: 048
     Dates: start: 20170523
  3. CELECOX [Suspect]
     Active Substance: CELECOXIB
     Indication: PAIN
     Dosage: 100 MG, 2X/DAY
     Route: 048
     Dates: start: 20170725, end: 20170928
  4. AZILVA [Concomitant]
     Active Substance: AZILSARTAN KAMEDOXOMIL
     Indication: HYPERTENSION
     Dosage: 40 MG, 1X/DAY
     Route: 048
     Dates: start: 20170523
  5. CELECOX [Suspect]
     Active Substance: CELECOXIB
     Indication: SPINAL OSTEOARTHRITIS
  6. KETOPROFEN. [Concomitant]
     Active Substance: KETOPROFEN
     Indication: SPINAL OSTEOARTHRITIS
     Dosage: 40 MG, 1X/DAY
     Route: 061
     Dates: start: 20170725
  7. FAMOTIDINE. [Concomitant]
     Active Substance: FAMOTIDINE
     Dosage: 20 MG, 1X/DAY
     Route: 048
     Dates: start: 20170325

REACTIONS (2)
  - Urinary retention [Recovering/Resolving]
  - Spontaneous penile erection [Recovering/Resolving]

NARRATIVE: CASE EVENT DATE: 201709
